FAERS Safety Report 14407694 (Version 5)
Quarter: 2018Q2

REPORT INFORMATION
  Report Type: Report from Study
  Country: US (occurrence: US)
  Receive Date: 20180118
  Receipt Date: 20180524
  Transmission Date: 20180711
  Serious: Yes (Other)
  Sender: FDA-Public Use
  Company Number: US-ACTELION-A-NJ2017-162820

PATIENT
  Age: 62 Year
  Sex: Male
  Weight: 87.98 kg

DRUGS (7)
  1. TYVASO [Suspect]
     Active Substance: TREPROSTINIL
     Dosage: 7 DF, QID
     Route: 055
  2. UPTRAVI [Suspect]
     Active Substance: SELEXIPAG
     Dosage: 400 MCG, BID
     Route: 048
  3. ADCIRCA [Concomitant]
     Active Substance: TADALAFIL
  4. UPTRAVI [Suspect]
     Active Substance: SELEXIPAG
     Indication: PULMONARY HYPERTENSION
     Dosage: 200 MCG, BID
     Route: 048
     Dates: end: 20180509
  5. TYVASO [Suspect]
     Active Substance: TREPROSTINIL
     Indication: PRODUCT USED FOR UNKNOWN INDICATION
     Dosage: 9 DF, QID
     Route: 055
  6. WARFARIN [Concomitant]
     Active Substance: WARFARIN
  7. OPSUMIT [Concomitant]
     Active Substance: MACITENTAN
     Dosage: UNK
     Dates: start: 201701

REACTIONS (24)
  - Condition aggravated [Unknown]
  - Dizziness [Unknown]
  - Throat irritation [Unknown]
  - Back pain [Unknown]
  - Balance disorder [Unknown]
  - Hypoaesthesia oral [Unknown]
  - Liver disorder [Unknown]
  - Feeling abnormal [Unknown]
  - Migraine [Recovering/Resolving]
  - Movement disorder [Unknown]
  - Oxygen consumption increased [Unknown]
  - Vision blurred [Unknown]
  - Arthralgia [Unknown]
  - Palpitations [Unknown]
  - Memory impairment [Unknown]
  - Cerebrovascular accident [Unknown]
  - Muscle spasms [Unknown]
  - Paranasal sinus discomfort [Unknown]
  - Chest pain [Recovering/Resolving]
  - Fatigue [Unknown]
  - Sinusitis [Unknown]
  - Headache [Unknown]
  - Dyspnoea [Unknown]
  - Diarrhoea [Unknown]

NARRATIVE: CASE EVENT DATE: 20180515
